FAERS Safety Report 13909240 (Version 1)
Quarter: 2017Q3

REPORT INFORMATION
  Report Type: Spontaneous
  Country: IT (occurrence: IT)
  Receive Date: 20170828
  Receipt Date: 20170828
  Transmission Date: 20171127
  Serious: Yes (Other)
  Sender: FDA-Public Use
  Company Number: IT-ACCORD-057593

PATIENT
  Age: 79 Year
  Sex: Female

DRUGS (2)
  1. AMLODIPINE [Suspect]
     Active Substance: AMLODIPINE BESYLATE
     Indication: HYPERTENSION
     Dosage: 10 MG (AN HALF DOSAGE FORM) 1 DOSAGE FORM ONLY AT 08.00 A.M
     Route: 048
     Dates: start: 20170804, end: 20170805
  2. PIPERACILLIN SODIUM/TAZOBACTAM SODIUM [Concomitant]
     Route: 042

REACTIONS (2)
  - Bronchospasm [Recovered/Resolved]
  - Rash [Recovered/Resolved]

NARRATIVE: CASE EVENT DATE: 20170805
